FAERS Safety Report 18533726 (Version 2)
Quarter: 2020Q4

REPORT INFORMATION
  Report Type: Spontaneous
  Country: US (occurrence: US)
  Receive Date: 20201123
  Receipt Date: 20201209
  Transmission Date: 20210114
  Serious: No
  Sender: FDA-Public Use
  Company Number: US-GLAXOSMITHKLINE-US2020AMR227184

PATIENT
  Sex: Female

DRUGS (1)
  1. BENLYSTA [Suspect]
     Active Substance: BELIMUMAB
     Indication: SYSTEMIC LUPUS ERYTHEMATOSUS
     Dosage: 200 MG
     Route: 058
     Dates: start: 20201002

REACTIONS (7)
  - Pruritus [Not Recovered/Not Resolved]
  - Adverse drug reaction [Unknown]
  - Skin burning sensation [Unknown]
  - Skin exfoliation [Not Recovered/Not Resolved]
  - Joint swelling [Unknown]
  - Swelling [Unknown]
  - Product dose omission issue [Unknown]
